FAERS Safety Report 14952669 (Version 1)
Quarter: 2018Q2

REPORT INFORMATION
  Report Type: Spontaneous
  Country: FR (occurrence: FR)
  Receive Date: 20180530
  Receipt Date: 20180530
  Transmission Date: 20180711
  Serious: Yes (Other)
  Sender: FDA-Public Use
  Company Number: FR-GLAXOSMITHKLINE-FR2018GSK094453

PATIENT
  Age: 69 Year
  Sex: Male

DRUGS (4)
  1. VENTOLINE [Suspect]
     Active Substance: ALBUTEROL
     Indication: ASTHMA
     Dosage: UNK
     Route: 055
     Dates: start: 201805, end: 201805
  2. SELECTOL [Concomitant]
     Active Substance: CELIPROLOL
     Indication: ILL-DEFINED DISORDER
     Dosage: 200 MG, 1D
  3. ANTIHISTAMINIC [Concomitant]
     Indication: ASTHMA
     Dosage: UNK
  4. FUROSEMIDE. [Concomitant]
     Active Substance: FUROSEMIDE
     Indication: ILL-DEFINED DISORDER
     Dosage: 20 MG, 1D

REACTIONS (4)
  - Cardiac flutter [Unknown]
  - Heart rate irregular [Unknown]
  - Dyspnoea [Unknown]
  - Extra dose administered [Unknown]

NARRATIVE: CASE EVENT DATE: 201805
